FAERS Safety Report 6526717-0 (Version None)
Quarter: 2009Q4

REPORT INFORMATION
  Report Type: 
  Country: None (occurrence: None)
  Receive Date: 20091214
  Receipt Date: 20091013
  Transmission Date: 20100525
  Serious: Yes (Other)
  Sender: FDA-Public Use
  Company Number: 662640

PATIENT
  Sex: Male

DRUGS (2)
  1. PEGASYS [Suspect]
     Indication: HEPATITIS C
     Dates: end: 20090501
  2. COPEGUS [Suspect]
     Indication: HEPATITIS C
     Dates: end: 20090501

REACTIONS (2)
  - FATIGUE [None]
  - HYPOTHYROIDISM [None]
